FAERS Safety Report 18097937 (Version 1)
Quarter: 2020Q3

REPORT INFORMATION
  Report Type: Report from Study
  Country: US (occurrence: US)
  Receive Date: 20200731
  Receipt Date: 20200731
  Transmission Date: 20201103
  Serious: Yes (Hospitalization)
  Sender: FDA-Public Use
  Company Number: US-EISAI MEDICAL RESEARCH-EC-2020-076416

PATIENT
  Age: 71 Year
  Sex: Female

DRUGS (2)
  1. LENVIMA [Suspect]
     Active Substance: LENVATINIB
     Indication: THYROID CANCER
     Route: 048
     Dates: start: 201912, end: 20200612
  2. LENVIMA [Suspect]
     Active Substance: LENVATINIB
     Route: 048
     Dates: start: 20200619, end: 202007

REACTIONS (10)
  - Sensitive skin [Unknown]
  - Glossodynia [Unknown]
  - Skin exfoliation [Unknown]
  - Erythema [Unknown]
  - Decreased appetite [Unknown]
  - Pneumonia [Unknown]
  - Weight decreased [Unknown]
  - Hypertension [Unknown]
  - Fatigue [Unknown]
  - Cough [Unknown]

NARRATIVE: CASE EVENT DATE: 2020
